FAERS Safety Report 24782935 (Version 1)
Quarter: 2024Q4

REPORT INFORMATION
  Report Type: Report from Study
  Country: NL (occurrence: NL)
  Receive Date: 20241227
  Receipt Date: 20241227
  Transmission Date: 20250115
  Serious: Yes (Other)
  Sender: ABBVIE
  Company Number: NL-ABBVIE-6063950

PATIENT
  Age: 69 Year
  Sex: Male

DRUGS (6)
  1. CARBIDOPA\LEVODOPA [Suspect]
     Active Substance: CARBIDOPA\LEVODOPA
     Indication: Parkinson^s disease
     Dosage: LAST ADMIN DATE-2024
     Route: 050
     Dates: start: 20240923
  2. CARBIDOPA\LEVODOPA [Suspect]
     Active Substance: CARBIDOPA\LEVODOPA
     Dosage: MD:12.0ML, CD:3.8ML/H, ED:2.00ML REMAINS AT 16
     Route: 050
     Dates: start: 20241022, end: 20241023
  3. CARBIDOPA\LEVODOPA [Suspect]
     Active Substance: CARBIDOPA\LEVODOPA
     Dosage: MD:4.5ML, CD:3.8ML/H, ED:2.00ML REMAINS AT 16
     Route: 050
     Dates: start: 20241023, end: 20241024
  4. CARBIDOPA\LEVODOPA [Suspect]
     Active Substance: CARBIDOPA\LEVODOPA
     Dosage: MD:7.5ML, CD:3.8ML/H, ED:2.00ML REMAINS AT 16
     Route: 050
     Dates: start: 20241024, end: 20241028
  5. CARBIDOPA\LEVODOPA [Suspect]
     Active Substance: CARBIDOPA\LEVODOPA
     Dosage: MD:7.5ML, CD:3.8ML/H, ED:2.00ML REMAINS AT 16
     Route: 050
     Dates: start: 20241028, end: 20241030
  6. CARBIDOPA\LEVODOPA [Suspect]
     Active Substance: CARBIDOPA\LEVODOPA
     Dosage: MD: 10.5ML, CD:3.8ML/H, ED:2.00ML REMAINS AT 16
     Route: 050
     Dates: start: 20241030

REACTIONS (1)
  - Oesophageal carcinoma [Not Recovered/Not Resolved]

NARRATIVE: CASE EVENT DATE: 20240101
